FAERS Safety Report 11783986 (Version 1)
Quarter: 2015Q4

REPORT INFORMATION
  Report Type: Spontaneous
  Country: FR (occurrence: FR)
  Receive Date: 20151128
  Receipt Date: 20151128
  Transmission Date: 20160305
  Serious: Yes (Hospitalization, Other)
  Sender: FDA-Public Use
  Company Number: FR-AMGEN-FRASP2015125650

PATIENT
  Age: 79 Year
  Sex: Male

DRUGS (15)
  1. DIFFU K [Concomitant]
     Active Substance: POTASSIUM CHLORIDE
     Dosage: 2400 MG, DAILY
  2. INEXIUM                            /01479302/ [Concomitant]
     Active Substance: ESOMEPRAZOLE MAGNESIUM
     Dosage: 20 MG, DAILY
  3. BISOCE [Concomitant]
     Active Substance: BISOPROLOL
     Dosage: 1.25 MG, DAILY
  4. CORTANCYL [Suspect]
     Active Substance: PREDNISONE
     Dosage: 17.5 MG, 1X/DAY
     Route: 048
     Dates: start: 201509
  5. DOLIPRANE [Concomitant]
     Active Substance: ACETAMINOPHEN
     Indication: PAIN
     Dosage: 1 G, AS NEEDED
  6. CORTANCYL [Suspect]
     Active Substance: PREDNISONE
     Dosage: 20 MG, 1X/DAY
     Route: 048
     Dates: start: 201506, end: 201508
  7. INNOHEP [Concomitant]
     Active Substance: TINZAPARIN SODIUM
     Dosage: 14000 IU, DAILY
  8. SERETIDE [Concomitant]
     Active Substance: FLUTICASONE FUROATE\SALMETEROL XINAFOATE
     Dosage: 1 DF, 2X/DAY IF REQUIRED
  9. ENBREL [Suspect]
     Active Substance: ETANERCEPT
     Indication: PRODUCT USED FOR UNKNOWN INDICATION
     Dosage: 50 MG, WEEKLY
     Route: 058
     Dates: start: 20150904, end: 20150911
  10. FORLAX [Concomitant]
     Active Substance: POLYETHYLENE GLYCOL 4000
     Indication: CONSTIPATION
     Dosage: UNK, AS NEEDED
  11. GUTRON [Concomitant]
     Active Substance: MIDODRINE
     Dosage: 5 MG, 2X/DAY
  12. LASILIX                            /00032601/ [Concomitant]
     Active Substance: FUROSEMIDE
     Dosage: 40 MG, DAILY
  13. ARANESP [Concomitant]
     Active Substance: DARBEPOETIN ALFA
     Dosage: UNK, WEEKLY
     Dates: start: 20150901
  14. COLCHIMAX                          /01722001/ [Concomitant]
     Active Substance: COLCHICINE\OPIUM\TIEMONIUM METHYLSULFATE
     Dosage: UNK, 1X/DAY IF REQUIRED
  15. FORTIMEL [Concomitant]
     Active Substance: DIETARY SUPPLEMENT
     Dosage: UNK, 2X/DAY

REACTIONS (2)
  - Lung disorder [Recovering/Resolving]
  - Escherichia infection [Unknown]

NARRATIVE: CASE EVENT DATE: 20150918
